FAERS Safety Report 4752766-9 (Version None)
Quarter: 2005Q3

REPORT INFORMATION
  Report Type: 
  Country: None (occurrence: None)
  Receive Date: 20050823
  Receipt Date: 20050810
  Transmission Date: 20060218
  Serious: Yes (Hospitalization, Other)
  Sender: FDA-Public Use
  Company Number: 2005109736

PATIENT
  Age: 45 Year
  Sex: Female
  Weight: 96.6162 kg

DRUGS (6)
  1. GEODON [Suspect]
     Indication: GENERALISED ANXIETY DISORDER
     Dosage: 80 MG (40 MG, 2 IN 1 D), ORAL
     Route: 048
     Dates: start: 20050606, end: 20050701
  2. GEODON [Suspect]
     Indication: OBSESSIVE-COMPULSIVE DISORDER
     Dosage: 80 MG (40 MG, 2 IN 1 D), ORAL
     Route: 048
     Dates: start: 20050606, end: 20050701
  3. ZOLOFT [Suspect]
     Indication: OBSESSIVE-COMPULSIVE DISORDER
     Dosage: 200 MG (1 IN 1 D)
     Dates: start: 20050527
  4. ZOLOFT [Suspect]
     Indication: PANIC DISORDER
     Dosage: 200 MG (1 IN 1 D)
     Dates: start: 20050527
  5. TOPOMAX 9TOPIRAMATE) [Concomitant]
  6. LUNESTA (ESOPICLONE) [Concomitant]

REACTIONS (2)
  - INSOMNIA [None]
  - PANCREATITIS [None]
